FAERS Safety Report 9420159 (Version 1)
Quarter: 2013Q3

REPORT INFORMATION
  Report Type: Spontaneous
  Country: US (occurrence: None)
  Receive Date: 20130723
  Receipt Date: 20130723
  Transmission Date: 20140515
  Serious: Yes (Hospitalization)
  Sender: FDA-Public Use
  Company Number: None

PATIENT
  Age: 67 Year
  Sex: Male
  Weight: 69.4 kg

DRUGS (1)
  1. TOPOTECAN [Suspect]
     Indication: LUNG NEOPLASM MALIGNANT
     Dates: start: 20130624, end: 20130628

REACTIONS (3)
  - Thrombocytopenia [None]
  - Leukopenia [None]
  - Anaemia [None]
